FAERS Safety Report 26054176 (Version 2)
Quarter: 2025Q4

REPORT INFORMATION
  Report Type: Spontaneous
  Country: EU (occurrence: EU)
  Receive Date: 20251117
  Receipt Date: 20251209
  Transmission Date: 20260118
  Serious: Yes (Other)
  Sender: SANOFI AVENTIS
  Company Number: None

PATIENT
  Age: 18 Year
  Sex: Male

DRUGS (10)
  1. DEXAMETHASONE [Suspect]
     Active Substance: DEXAMETHASONE
     Indication: Factor VIII inhibition
     Dosage: 2X12 MG/M2, QD, DAY 1-4
  2. MYCOPHENOLATE MOFETIL [Suspect]
     Active Substance: MYCOPHENOLATE MOFETIL
     Indication: Factor VIII inhibition
     Dosage: 2X300 MG/M2 QD
  3. MYCOPHENOLATE MOFETIL [Suspect]
     Active Substance: MYCOPHENOLATE MOFETIL
     Dosage: UNK
  4. MYCOPHENOLATE MOFETIL [Suspect]
     Active Substance: MYCOPHENOLATE MOFETIL
     Dosage: UNK (DOSE REDUCED)
  5. CAMPATH [Suspect]
     Active Substance: ALEMTUZUMAB
     Indication: Factor VIII inhibition
     Dosage: UNK
  6. RITUXIMAB [Suspect]
     Active Substance: RITUXIMAB
     Indication: Factor VIII inhibition
     Dosage: 375 MG/M2/D, QW
  7. RITUXIMAB [Suspect]
     Active Substance: RITUXIMAB
     Dosage: UNK
  8. CYCLOSPORINE [Suspect]
     Active Substance: CYCLOSPORINE
     Indication: Factor VIII inhibition
     Dosage: UNK
  9. IMMUNE GLOBULIN NOS [Concomitant]
     Active Substance: IMMUNE GLOBULIN NOS
     Indication: Factor VIII inhibition
     Dosage: 1 G/KG, QD (DAY 3-4)
     Route: 042
  10. ANTIHEMOPHILIC FACTOR HUMAN [Concomitant]
     Active Substance: ANTIHEMOPHILIC FACTOR HUMAN
     Dosage: 2X100U/KG/D, 2X50U/KG/D RESP, QD

REACTIONS (5)
  - Cytomegalovirus infection reactivation [Recovered/Resolved]
  - Psychotic disorder [Unknown]
  - Paronychia [Unknown]
  - Skin infection [Unknown]
  - Sepsis [Unknown]
